FAERS Safety Report 11241969 (Version 1)
Quarter: 2015Q3

REPORT INFORMATION
  Report Type: Spontaneous
  Country: IN (occurrence: IN)
  Receive Date: 20150706
  Receipt Date: 20150706
  Transmission Date: 20151125
  Serious: Yes (Other)
  Sender: FDA-Public Use
  Company Number: IN-MYLANLABS-2015M1021962

PATIENT

DRUGS (8)
  1. NICORANDIL [Concomitant]
     Active Substance: NICORANDIL
     Indication: ANGINA UNSTABLE
     Dosage: 5 MG X 12 HOURLY
     Route: 065
  2. ASPIRIN                            /00002701/ [Concomitant]
     Active Substance: ASPIRIN
     Indication: ANGINA UNSTABLE
     Route: 065
  3. FONDAPARINUX SODIUM. [Concomitant]
     Active Substance: FONDAPARINUX SODIUM
     Indication: ANGINA UNSTABLE
     Route: 058
  4. ALDACTONE D [Concomitant]
     Indication: ANGINA UNSTABLE
     Dosage: FRUSEMIDE/SPIRONOLACTONE: 20 MG + 50 MG 1/2 BD
     Route: 065
  5. DILTIAZEM [Suspect]
     Active Substance: DILTIAZEM
     Indication: ANGINA UNSTABLE
     Dosage: 90 MG X 12 HOURLY
     Route: 065
  6. RANOLAZINE [Interacting]
     Active Substance: RANOLAZINE
     Indication: ANGINA UNSTABLE
     Dosage: 500 MG X 12 HOURLY
     Route: 065
  7. IVABRADINE [Interacting]
     Active Substance: IVABRADINE
     Indication: ANGINA UNSTABLE
     Dosage: 5 MG X 12 HOURLY
     Route: 065
  8. CLOPIDOGREL [Concomitant]
     Active Substance: CLOPIDOGREL BISULFATE
     Indication: ANGINA UNSTABLE
     Route: 065

REACTIONS (4)
  - Electrocardiogram QT prolonged [Recovered/Resolved]
  - Torsade de pointes [Recovered/Resolved]
  - Drug interaction [Recovered/Resolved]
  - Nodal rhythm [Recovered/Resolved]
